FAERS Safety Report 8989759 (Version 3)
Quarter: 2013Q2

REPORT INFORMATION
  Report Type: Report from Study
  Country: US (occurrence: US)
  Receive Date: 20121228
  Receipt Date: 20130515
  Transmission Date: 20140414
  Serious: Yes (Other)
  Sender: FDA-Public Use
  Company Number: US-ABBOTT-12P-163-1025475-00

PATIENT
  Sex: Female

DRUGS (10)
  1. HUMIRA [Suspect]
     Indication: PSORIATIC ARTHROPATHY
     Route: 058
     Dates: start: 201209, end: 201210
  2. HUMIRA [Suspect]
     Dates: start: 201303
  3. SYNTHROID [Concomitant]
     Indication: HYPOTHYROIDISM
  4. LISINOPRIL [Concomitant]
     Indication: HYPERTENSION
  5. CRESTOR [Concomitant]
     Indication: DIABETES MELLITUS
  6. MELOXICAM [Concomitant]
     Indication: PSORIATIC ARTHROPATHY
  7. STEROID CREAM [Concomitant]
     Indication: PSORIASIS
  8. METHOTREXATE [Concomitant]
     Indication: PSORIATIC ARTHROPATHY
  9. METFORMIN [Concomitant]
     Indication: DIABETES MELLITUS
  10. INSULIN [Concomitant]
     Indication: DIABETES MELLITUS
     Dosage: LOW DOSE

REACTIONS (8)
  - Vaginal haemorrhage [Unknown]
  - Uterine polyp [Recovered/Resolved]
  - Injection site rash [Not Recovered/Not Resolved]
  - Injection site erythema [Not Recovered/Not Resolved]
  - Rash pruritic [Not Recovered/Not Resolved]
  - Scar [Not Recovered/Not Resolved]
  - Incorrect dose administered [Not Recovered/Not Resolved]
  - Device malfunction [Unknown]
